FAERS Safety Report 10294748 (Version 1)
Quarter: 2014Q3

REPORT INFORMATION
  Report Type: Spontaneous
  Country: GB (occurrence: GB)
  Receive Date: 20140711
  Receipt Date: 20140711
  Transmission Date: 20150326
  Serious: Yes (Hospitalization, Disabling, Other)
  Sender: FDA-Public Use
  Company Number: GB-009507513-1407GBR004710

PATIENT
  Age: 23 Year
  Sex: Female
  Weight: 78.1 kg

DRUGS (6)
  1. DAKTARIN [Concomitant]
     Active Substance: MICONAZOLE NITRATE
  2. ETONOGESTREL IMPLANT- UNKNOWN [Suspect]
     Active Substance: ETONOGESTREL
     Indication: CONTRACEPTION
     Dosage: INDICATION: POST-PARTUM CONTRACEPTION
     Route: 059
     Dates: start: 20140620
  3. ACETAMINOPHEN. [Concomitant]
     Active Substance: ACETAMINOPHEN
  4. IBUPROFEN. [Concomitant]
     Active Substance: IBUPROFEN
  5. SENOKOT (SENNOSIDES) [Concomitant]
  6. MORPHINE [Concomitant]
     Active Substance: MORPHINE

REACTIONS (6)
  - Palpitations [Not Recovered/Not Resolved]
  - Chest pain [Not Recovered/Not Resolved]
  - Abdominal pain [Not Recovered/Not Resolved]
  - Dizziness [Recovering/Resolving]
  - Vaginal haemorrhage [Recovered/Resolved with Sequelae]
  - Nausea [Recovering/Resolving]

NARRATIVE: CASE EVENT DATE: 20140620
